FAERS Safety Report 19475989 (Version 1)
Quarter: 2021Q2

REPORT INFORMATION
  Report Type: Spontaneous
  Country: CH (occurrence: CH)
  Receive Date: 20210630
  Receipt Date: 20210630
  Transmission Date: 20210717
  Serious: Yes (Hospitalization)
  Sender: FDA-Public Use
  Company Number: CH-PFIZER INC-12248

PATIENT
  Age: 45 Year
  Sex: Female

DRUGS (8)
  1. HEPARIN [Concomitant]
     Active Substance: HEPARIN SODIUM
     Indication: ENDOCARDITIS BACTERIAL
     Dosage: UNK
     Route: 065
  2. AMIODARONE HCL [Concomitant]
     Active Substance: AMIODARONE HYDROCHLORIDE
     Indication: ENDOCARDITIS BACTERIAL
     Dosage: UNK
     Route: 065
  3. WARFARIN [Concomitant]
     Active Substance: WARFARIN
     Indication: ENDOCARDITIS BACTERIAL
     Dosage: UNK
     Route: 065
  4. VANCOMYCIN HCL [Suspect]
     Active Substance: VANCOMYCIN HYDROCHLORIDE
     Indication: ENDOCARDITIS BACTERIAL
     Dosage: UNK
     Route: 042
  5. OMEPRAZOLE. [Concomitant]
     Active Substance: OMEPRAZOLE
     Indication: ENDOCARDITIS BACTERIAL
     Dosage: UNK
     Route: 065
  6. RIFAMPIN. [Concomitant]
     Active Substance: RIFAMPIN
     Indication: ENDOCARDITIS BACTERIAL
     Dosage: UNK
     Route: 048
  7. GENTAMYCIN?MP [Concomitant]
     Active Substance: GENTAMICIN SULFATE
     Indication: ENDOCARDITIS BACTERIAL
     Dosage: UNK
     Route: 042
  8. ENALAPRIL MALEATE. [Concomitant]
     Active Substance: ENALAPRIL MALEATE
     Indication: ENDOCARDITIS BACTERIAL
     Dosage: UNK
     Route: 065

REACTIONS (3)
  - Drug reaction with eosinophilia and systemic symptoms [Recovered/Resolved]
  - Tubulointerstitial nephritis [Recovered/Resolved]
  - Hepatitis [Unknown]
